FAERS Safety Report 13433597 (Version 1)
Quarter: 2017Q2

REPORT INFORMATION
  Report Type: Spontaneous
  Country: GB (occurrence: GB)
  Receive Date: 20170412
  Receipt Date: 20170412
  Transmission Date: 20170830
  Serious: Yes (Hospitalization)
  Sender: FDA-Public Use
  Company Number: GB-TORRENT-00015098

PATIENT
  Age: 93 Year
  Sex: Female
  Weight: 48 kg

DRUGS (7)
  1. FELODIPINE. [Concomitant]
     Active Substance: FELODIPINE
  2. TERBINAFINE. [Concomitant]
     Active Substance: TERBINAFINE
  3. CALCICHEW [Concomitant]
     Active Substance: CALCIUM CARBONATE
  4. MIRTAZAPINE HYDROCHLORIDE [Concomitant]
     Active Substance: MIRTAZAPINE
  5. FERROUS SULFATE. [Concomitant]
     Active Substance: FERROUS SULFATE
  6. FOLIC ACID. [Concomitant]
     Active Substance: FOLIC ACID
  7. MEMANTINE. [Suspect]
     Active Substance: MEMANTINE

REACTIONS (6)
  - Incontinence [Unknown]
  - Diarrhoea [Recovering/Resolving]
  - Abnormal behaviour [Unknown]
  - Aggression [Recovering/Resolving]
  - Hallucination [Recovering/Resolving]
  - Agitation [Recovering/Resolving]

NARRATIVE: CASE EVENT DATE: 20170131
